FAERS Safety Report 14530655 (Version 2)
Quarter: 2018Q1

REPORT INFORMATION
  Report Type: Spontaneous
  Country: US (occurrence: US)
  Receive Date: 20180214
  Receipt Date: 20180226
  Transmission Date: 20180509
  Serious: Yes (Other)
  Sender: FDA-Public Use
  Company Number: US-UNITED THERAPEUTICS-UNT-2018-001846

PATIENT
  Age: 69 Year
  Sex: Female
  Weight: 120.18 kg

DRUGS (3)
  1. OPSUMIT [Concomitant]
     Active Substance: MACITENTAN
     Indication: PRODUCT USED FOR UNKNOWN INDICATION
     Route: 065
  2. REMODULIN [Suspect]
     Active Substance: TREPROSTINIL
     Indication: PULMONARY HYPERTENSION
     Dosage: 0.068 ?G/KG, CONTINUING
     Route: 041
     Dates: start: 20090806
  3. TRACLEER [Concomitant]
     Active Substance: BOSENTAN
     Indication: PRODUCT USED FOR UNKNOWN INDICATION
     Route: 065

REACTIONS (7)
  - Urinary incontinence [Unknown]
  - Decubitus ulcer [Unknown]
  - Stress [Unknown]
  - Suicidal ideation [Unknown]
  - Infection [Unknown]
  - Syncope [Unknown]
  - Bladder mass [Unknown]

NARRATIVE: CASE EVENT DATE: 201801
